FAERS Safety Report 7822717-9 (Version None)
Quarter: 2011Q4

REPORT INFORMATION
  Report Type: 
  Country: None (occurrence: None)
  Receive Date: 20111018
  Receipt Date: 20111012
  Transmission Date: 20120403
  Serious: Yes (Hospitalization, Other)
  Sender: FDA-Public Use
  Company Number: JP-ROCHE-778619

PATIENT
  Sex: Female
  Weight: 37 kg

DRUGS (24)
  1. RHEUMATREX [Concomitant]
     Route: 048
     Dates: start: 20081119, end: 20081216
  2. RHEUMATREX [Concomitant]
     Route: 048
  3. PREDNISOLONE [Concomitant]
     Route: 048
  4. PROGRAF [Concomitant]
     Route: 048
     Dates: start: 20080528, end: 20080916
  5. MUCOSTA [Concomitant]
     Route: 048
  6. COMTAN [Concomitant]
     Route: 048
  7. LANSOPRAZOLE [Concomitant]
     Route: 048
  8. ACTEMRA [Suspect]
     Indication: RHEUMATOID ARTHRITIS
     Dosage: NOTE: 270-320MG
     Route: 041
     Dates: start: 20080627, end: 20101214
  9. RHEUMATREX [Concomitant]
     Route: 048
     Dates: start: 20050101, end: 20080723
  10. FOLIC ACID [Concomitant]
     Route: 048
  11. MAGMITT [Concomitant]
     Route: 048
  12. CELECOXIB [Concomitant]
     Route: 048
  13. FERROUS CITRATE [Concomitant]
     Route: 048
  14. PREDNISOLONE [Concomitant]
     Route: 048
     Dates: start: 20080820, end: 20081004
  15. PROGRAF [Concomitant]
     Route: 048
     Dates: start: 20080917, end: 20081004
  16. FORSENID [Concomitant]
     Dosage: INFUSION RATE DECREASED
     Route: 048
  17. EVISTA [Concomitant]
  18. PRAMIPEXOLE DIHYDROCHLORIDE [Concomitant]
     Route: 048
  19. RHEUMATREX [Concomitant]
     Route: 048
     Dates: start: 20050607, end: 20050101
  20. CLINORIL [Concomitant]
     Route: 048
  21. ALFACALCIDOL [Concomitant]
     Dosage: ALSIODOL
     Route: 048
  22. ALENDRONATE SODIUM [Concomitant]
     Dosage: FOSAMAC 35MG
     Route: 048
  23. SELBEX [Concomitant]
     Route: 048
  24. OMEPRAZOLE [Concomitant]
     Dosage: INFUSION RATE DECREASED
     Route: 048

REACTIONS (4)
  - DECUBITUS ULCER [None]
  - PATELLA FRACTURE [None]
  - OSTEOARTHRITIS [None]
  - PNEUMONIA [None]
